APPROVED DRUG PRODUCT: CETIRIZINE HYDROCHLORIDE ALLERGY
Active Ingredient: CETIRIZINE HYDROCHLORIDE
Strength: 10MG
Dosage Form/Route: CAPSULE;ORAL
Application: A213105 | Product #001
Applicant: CATALENT PHARMA SOLUTIONS LLC
Approved: Sep 21, 2020 | RLD: No | RS: No | Type: OTC